FAERS Safety Report 5025109-3 (Version None)
Quarter: 2006Q2

REPORT INFORMATION
  Report Type: 
  Country: None (occurrence: None)
  Receive Date: 20060613
  Receipt Date: 20060530
  Transmission Date: 20061013
  Serious: Yes (Other)
  Sender: FDA-Public Use
  Company Number: US-AMGEN-US181390

PATIENT

DRUGS (1)
  1. EPOGEN [Suspect]
     Indication: ANAEMIA
     Dates: start: 20030101

REACTIONS (1)
  - APLASIA PURE RED CELL [None]
